FAERS Safety Report 23384370 (Version 3)
Quarter: 2024Q1

REPORT INFORMATION
  Report Type: Spontaneous
  Country: US (occurrence: US)
  Receive Date: 20240109
  Receipt Date: 20240131
  Transmission Date: 20240409
  Serious: No
  Sender: FDA-Public Use
  Company Number: US-PFIZER INC-202400001732

PATIENT
  Age: 57 Year
  Sex: Male

DRUGS (7)
  1. XELJANZ XR [Suspect]
     Active Substance: TOFACITINIB CITRATE
     Dosage: TAKE 1 TABLET BY MOUTH ONCE DAILY
     Route: 048
     Dates: start: 202310
  2. METFORMIN HYDROCHLORIDE [Concomitant]
     Active Substance: METFORMIN HYDROCHLORIDE
  3. VITAMINS NOS [Concomitant]
     Active Substance: VITAMINS
  4. PREDNISONE [Concomitant]
     Active Substance: PREDNISONE
  5. METHOTREXATE [Concomitant]
     Active Substance: METHOTREXATE
     Indication: Rheumatic disorder
  6. FOLIC ACID [Concomitant]
     Active Substance: FOLIC ACID
  7. BUPROPION HYDROCHLORIDE [Concomitant]
     Active Substance: BUPROPION HYDROCHLORIDE

REACTIONS (2)
  - Illness [Unknown]
  - Nasopharyngitis [Unknown]
